FAERS Safety Report 18302053 (Version 9)
Quarter: 2022Q2

REPORT INFORMATION
  Report Type: Spontaneous
  Country: US (occurrence: US)
  Receive Date: 20200923
  Receipt Date: 20220428
  Transmission Date: 20220721
  Serious: No
  Sender: FDA-Public Use
  Company Number: US-PFIZER INC-2020359093

PATIENT
  Age: 11 Year
  Sex: Female

DRUGS (4)
  1. GENOTROPIN [Suspect]
     Active Substance: SOMATROPIN
     Dosage: 1.6 MG
     Dates: start: 2010
  2. GENOTROPIN [Suspect]
     Active Substance: SOMATROPIN
     Dosage: 1.2 MG, DAILY (7 DAYS A WEEK)
     Dates: start: 20101114
  3. GENOTROPIN [Suspect]
     Active Substance: SOMATROPIN
     Dosage: 1.8 MG, DAILY
     Dates: start: 20101114
  4. GENOTROPIN [Suspect]
     Active Substance: SOMATROPIN
     Dosage: 2.2 MG

REACTIONS (8)
  - Device issue [Unknown]
  - Needle issue [Unknown]
  - Injection site pain [Unknown]
  - Nervousness [Unknown]
  - Drug dose omission by device [Unknown]
  - Device information output issue [Unknown]
  - Device use error [Unknown]
  - Device breakage [Unknown]
